FAERS Safety Report 7230274-3 (Version None)
Quarter: 2011Q1

REPORT INFORMATION
  Report Type: 
  Country: None (occurrence: None)
  Receive Date: 20110118
  Receipt Date: 20110106
  Transmission Date: 20110831
  Serious: Yes (Other)
  Sender: FDA-Public Use
  Company Number: US-PFIZER INC-2010108379

PATIENT
  Sex: Male

DRUGS (2)
  1. PAXIL [Concomitant]
     Dosage: UNK
     Dates: start: 20080219, end: 20080328
  2. CHANTIX [Suspect]
     Indication: SMOKING CESSATION THERAPY
     Dosage: 1 MG, UNK
     Dates: start: 20080219, end: 20080328

REACTIONS (4)
  - SUICIDE ATTEMPT [None]
  - AGGRESSION [None]
  - NIGHTMARE [None]
  - LOSS OF CONSCIOUSNESS [None]
